FAERS Safety Report 20890063 (Version 2)
Quarter: 2022Q3

REPORT INFORMATION
  Report Type: Report from Study
  Country: CO (occurrence: CO)
  Receive Date: 20220530
  Receipt Date: 20220627
  Transmission Date: 20221026
  Serious: Yes (Other)
  Sender: FDA-Public Use
  Company Number: CO-NOVARTISPH-NVSC2022CO123586

PATIENT
  Sex: Female

DRUGS (2)
  1. KISQALI [Suspect]
     Active Substance: RIBOCICLIB
     Indication: Hormone receptor positive HER2 negative breast cancer
     Dosage: 600 MG, QD
     Route: 048
  2. FEMARA [Suspect]
     Active Substance: LETROZOLE
     Indication: Breast cancer
     Dosage: 2.5 MG, QD
     Route: 048

REACTIONS (3)
  - Mass [Unknown]
  - Metastases to spine [Unknown]
  - Vomiting [Unknown]
